FAERS Safety Report 21658798 (Version 4)
Quarter: 2023Q1

REPORT INFORMATION
  Report Type: Report from Study
  Country: FR (occurrence: BE)
  Receive Date: 20221129
  Receipt Date: 20230103
  Transmission Date: 20230418
  Serious: Yes (Hospitalization)
  Sender: FDA-Public Use
  Company Number: FR-BAYER-2022P023159

PATIENT
  Age: 76 Year
  Sex: Female
  Weight: 59.8 kg

DRUGS (2)
  1. REGORAFENIB [Suspect]
     Active Substance: REGORAFENIB
     Indication: Rectal cancer
     Dosage: 80 MG, QD
     Route: 048
     Dates: start: 20221107, end: 20221120
  2. NIVOLUMAB [Suspect]
     Active Substance: NIVOLUMAB
     Indication: Rectal cancer
     Dosage: 240 MG, Q2WK
     Route: 042
     Dates: start: 20221107, end: 20221107

REACTIONS (3)
  - Fatigue [Recovered/Resolved]
  - Rash maculo-papular [Recovered/Resolved]
  - Rhabdomyolysis [Recovered/Resolved]

NARRATIVE: CASE EVENT DATE: 20221110
